FAERS Safety Report 8084895-9 (Version None)
Quarter: 2012Q1

REPORT INFORMATION
  Report Type: 
  Country: None (occurrence: None)
  Receive Date: 20120128
  Receipt Date: 20110325
  Transmission Date: 20120608
  Serious: No
  Sender: FDA-Public Use
  Company Number: US-ABBOTT-11P-163-0714642-00

PATIENT
  Sex: Female
  Weight: 77.18 kg

DRUGS (4)
  1. METHOTREXATE [Concomitant]
     Indication: RHEUMATOID ARTHRITIS
  2. NAPROSON [Concomitant]
     Indication: PAIN
  3. HUMIRA [Suspect]
     Indication: RHEUMATOID ARTHRITIS
     Dates: start: 20060101
  4. MOBIC [Concomitant]
     Indication: PAIN

REACTIONS (5)
  - CHILLS [None]
  - PRURITUS [None]
  - PAIN [None]
  - FEELING HOT [None]
  - ARTHRALGIA [None]
